FAERS Safety Report 21106570 (Version 2)
Quarter: 2022Q3

REPORT INFORMATION
  Report Type: Spontaneous
  Country: US (occurrence: US)
  Receive Date: 20220720
  Receipt Date: 20220729
  Transmission Date: 20221027
  Serious: No
  Sender: FDA-Public Use
  Company Number: US-ALKERMES INC.-ALK-2022-003500

PATIENT
  Sex: Female

DRUGS (1)
  1. VIVITROL [Suspect]
     Active Substance: NALTREXONE
     Indication: Product used for unknown indication
     Dosage: 380 MILLIGRAM, QMO
     Route: 030

REACTIONS (6)
  - Incorrect dose administered [Not Recovered/Not Resolved]
  - Product preparation error [Recovered/Resolved]
  - Product administered at inappropriate site [Unknown]
  - Eye swelling [Unknown]
  - Product gel formation [Recovered/Resolved]
  - Needle issue [Recovered/Resolved]
